FAERS Safety Report 17353727 (Version 1)
Quarter: 2020Q1

REPORT INFORMATION
  Report Type: Spontaneous
  Country: US (occurrence: US)
  Receive Date: 20200130
  Receipt Date: 20200130
  Transmission Date: 20200409
  Serious: Yes (Death)
  Sender: FDA-Public Use
  Company Number: None

PATIENT
  Age: 87 Year
  Sex: Male
  Weight: 67.5 kg

DRUGS (3)
  1. PREDNISONE. [Concomitant]
     Active Substance: PREDNISONE
  2. SUPPLEMENTS [Concomitant]
     Active Substance: UNSPECIFIED INGREDIENT
  3. RETACRIT [Suspect]
     Active Substance: EPOETIN ALFA-EPBX
     Indication: HAEMOLYTIC ANAEMIA
     Dosage: ?          OTHER FREQUENCY:WEAKLY;?
     Route: 058
     Dates: start: 20190426, end: 20191029

REACTIONS (2)
  - Haemoglobin decreased [None]
  - Haemolysis [None]

NARRATIVE: CASE EVENT DATE: 20190426
